FAERS Safety Report 10055255 (Version 1)
Quarter: 2014Q2

REPORT INFORMATION
  Report Type: Report from Study
  Country: US (occurrence: US)
  Receive Date: 20140403
  Receipt Date: 20140403
  Transmission Date: 20141212
  Serious: Yes (Other)
  Sender: FDA-Public Use
  Company Number: US-ROCHE-1374976

PATIENT
  Sex: Female
  Weight: 55.84 kg

DRUGS (5)
  1. LUCENTIS [Suspect]
     Indication: AGE-RELATED MACULAR DEGENERATION
     Dosage: A FEW YEAR AGO
     Route: 065
  2. GABAPENTIN [Concomitant]
     Indication: CONVULSION
  3. FLEXERIL (UNITED STATES) [Concomitant]
     Indication: MUSCLE SPASMS
  4. ZOLOFT [Concomitant]
     Indication: DEPRESSION
  5. LORAZEPAM [Concomitant]
     Indication: ANXIETY

REACTIONS (8)
  - Lung neoplasm malignant [Unknown]
  - Loss of consciousness [Unknown]
  - Fall [Unknown]
  - Eye pain [Unknown]
  - Visual acuity reduced [Unknown]
  - Balance disorder [Unknown]
  - Weight decreased [Unknown]
  - Hallucination, visual [Unknown]
